FAERS Safety Report 4332664-5 (Version None)
Quarter: 2004Q1

REPORT INFORMATION
  Report Type: 
  Country: None (occurrence: None)
  Receive Date: 20040330
  Receipt Date: 20040319
  Transmission Date: 20041129
  Serious: Yes (Death)
  Sender: FDA-Public Use
  Company Number: 200410878GDS

PATIENT
  Age: 83 Year
  Sex: Female
  Weight: 80.4 kg

DRUGS (9)
  1. AVELOX [Suspect]
     Indication: PNEUMONIA
     Dosage: 400 MG, TOTAL DAILY, ORAL
     Route: 048
     Dates: start: 20040105, end: 20040108
  2. LOSEC [Concomitant]
  3. LASIX [Concomitant]
  4. FERROGRADUMET [Concomitant]
  5. SERENASE [Concomitant]
  6. TILDIEM [Concomitant]
  7. LYSOMUCIL [Concomitant]
  8. DUOVENT [Concomitant]
  9. ROCEPHIN [Concomitant]

REACTIONS (3)
  - DIARRHOEA [None]
  - DRUG INEFFECTIVE [None]
  - RENAL FAILURE ACUTE [None]
